FAERS Safety Report 9248919 (Version 2)
Quarter: 2013Q2

REPORT INFORMATION
  Report Type: Spontaneous
  Country: FR (occurrence: FR)
  Receive Date: 20130423
  Receipt Date: 20130620
  Transmission Date: 20140414
  Serious: Yes (Hospitalization, Other)
  Sender: FDA-Public Use
  Company Number: FR-ELI_LILLY_AND_COMPANY-FR201304003571

PATIENT
  Age: 42 Year
  Sex: Female

DRUGS (2)
  1. PROZAC [Suspect]
     Dosage: 1 DF, UNKNOWN
     Route: 048
  2. MONEVA [Concomitant]
     Indication: CONTRACEPTION
     Dosage: 1 DF, UNKNOWN
     Dates: end: 20120316

REACTIONS (1)
  - Ischaemic stroke [Recovered/Resolved with Sequelae]
